FAERS Safety Report 6549078-X (Version None)
Quarter: 2010Q1

REPORT INFORMATION
  Report Type: 
  Country: None (occurrence: None)
  Receive Date: 20100119
  Receipt Date: 20100114
  Transmission Date: 20100710
  Serious: Yes (Other)
  Sender: FDA-Public Use
  Company Number: 2009SP034657

PATIENT
  Age: 12 Year
  Sex: Male
  Weight: 43 kg

DRUGS (4)
  1. MUSCULAX (VECURONIUM BROMIDE) (VECURONIUM BROMIDE) [Suspect]
     Indication: NEUROMUSCULAR BLOCKING THERAPY
     Dosage: 5 MG; ; IV
     Route: 042
  2. THIAMYLAL (THIAMYLAL) [Suspect]
     Indication: ANAESTHESIA PROCEDURE
  3. FENTANYL-100 [Suspect]
     Indication: ANALGESIC THERAPY
  4. HYDROCORTISONE [Suspect]
     Indication: MAINTENANCE OF ANAESTHESIA

REACTIONS (2)
  - ACIDOSIS [None]
  - HYPERTHERMIA MALIGNANT [None]
